FAERS Safety Report 5925353-4 (Version None)
Quarter: 2008Q4

REPORT INFORMATION
  Report Type: 
  Country: None (occurrence: None)
  Receive Date: 20081021
  Receipt Date: 20081009
  Transmission Date: 20090506
  Serious: Yes (Other)
  Sender: FDA-Public Use
  Company Number: IE-JNJCH-2008021016

PATIENT
  Sex: Female

DRUGS (2)
  1. CALPOL SIX PLUS [Suspect]
     Indication: MIGRAINE
     Dosage: TEXT:ONCE OFF TWO SPOONFULS
     Route: 048
  2. BECOTIDE [Concomitant]
     Indication: ASTHMA
     Dosage: TEXT:50 MICROGRAMS UNSPECIFIED
     Route: 055

REACTIONS (4)
  - COUGH [None]
  - DYSPNOEA [None]
  - SLEEP DISORDER [None]
  - WHEEZING [None]
